FAERS Safety Report 11281129 (Version 1)
Quarter: 2015Q3

REPORT INFORMATION
  Report Type: Spontaneous
  Country: JP (occurrence: JP)
  Receive Date: 20150717
  Receipt Date: 20150717
  Transmission Date: 20151125
  Serious: Yes (Other)
  Sender: FDA-Public Use
  Company Number: JP-GLAXOSMITHKLINE-JP2015JPN100023

PATIENT
  Age: 35 Year
  Sex: Female

DRUGS (1)
  1. ZOVIRAX [Suspect]
     Active Substance: ACYCLOVIR
     Route: 048

REACTIONS (3)
  - Exposure during pregnancy [Unknown]
  - Seizure [Recovering/Resolving]
  - Neurosyphilis [Recovering/Resolving]
